FAERS Safety Report 10362885 (Version 1)
Quarter: 2014Q3

REPORT INFORMATION
  Report Type: Spontaneous
  Country: IT (occurrence: None)
  Receive Date: 20140731
  Receipt Date: 20140731
  Transmission Date: 20150326
  Serious: Yes (Life-Threatening)
  Sender: FDA-Public Use
  Company Number: AUR-APL-2014-08054

PATIENT
  Age: 88 Year
  Sex: Female

DRUGS (8)
  1. TRITTICO (TRAZODONE HYDROCHLORIDE) [Concomitant]
  2. AMOXICILLIN TABLET (AMOXICILLIN) TABLET [Suspect]
     Active Substance: AMOXICILLIN
     Indication: RESPIRATORY TRACT INFLAMMATION
     Route: 048
     Dates: start: 20140711, end: 20140711
  3. PANTOPRAZOLE [Concomitant]
     Active Substance: PANTOPRAZOLE SODIUM
  4. COUMADIN [Concomitant]
     Active Substance: WARFARIN SODIUM
  5. STALEVO (CARBIDOPA, ENTACAPONE, LEVODOPA) [Concomitant]
  6. DILATREND (CARVEDILOL) [Concomitant]
  7. LASIX [Concomitant]
     Active Substance: FUROSEMIDE
  8. LUVION (CANRENOIC ACID) [Concomitant]
     Active Substance: CANRENOIC ACID

REACTIONS (5)
  - Syncope [None]
  - Hypotension [None]
  - Nausea [None]
  - Hypersensitivity [None]
  - Hyperhidrosis [None]

NARRATIVE: CASE EVENT DATE: 20140711
